FAERS Safety Report 5255938-2 (Version None)
Quarter: 2007Q1

REPORT INFORMATION
  Report Type: 
  Country: None (occurrence: None)
  Receive Date: 20061204
  Receipt Date: 20060914
  Transmission Date: 20070707
  Serious: No
  Sender: FDA-Public Use
  Company Number: 2006-BP-10819BP

PATIENT
  Age: 87 Year
  Sex: Female

DRUGS (3)
  1. SPIRIVA [Suspect]
     Indication: CHRONIC OBSTRUCTIVE PULMONARY DISEASE
     Dosage: 18 MCG (18 MCG, 1 IN 1 D), IH
     Route: 055
     Dates: start: 20060801
  2. LASIX [Concomitant]
  3. XALATAN [Concomitant]

REACTIONS (2)
  - INTRAOCULAR PRESSURE INCREASED [None]
  - URINARY HESITATION [None]
